FAERS Safety Report 7036895-5 (Version None)
Quarter: 2010Q4

REPORT INFORMATION
  Report Type: 
  Country: None (occurrence: None)
  Receive Date: 20101011
  Receipt Date: 20100930
  Transmission Date: 20110411
  Serious: No
  Sender: FDA-Public Use
  Company Number: US-JNJFOC-20101000834

PATIENT
  Sex: Male
  Weight: 51.26 kg

DRUGS (6)
  1. SANDOZ FENTANYL TRANSDERMAL SYSTEM [Suspect]
     Indication: NECK PAIN
     Dosage: 50MCG PATCHES/1 OR 2 EVERY 48 HOURS
     Route: 062
  2. SANDOZ FENTANYL TRANSDERMAL SYSTEM [Suspect]
     Indication: BACK PAIN
     Dosage: 50MCG PATCHES/1 OR 2 EVERY 48 HOURS
     Route: 062
  3. SANDOZ FENTANYL TRANSDERMAL SYSTEM [Suspect]
     Dosage: 50MCG PATCHES/1 OR 2 EVERY 48 HOURS
     Route: 062
  4. SANDOZ FENTANYL TRANSDERMAL SYSTEM [Suspect]
     Dosage: 50MCG PATCHES/1 OR 2 EVERY 48 HOURS
     Route: 062
  5. OXYCODONE [Concomitant]
     Indication: BREAKTHROUGH PAIN
     Route: 048
  6. ALTACE [Concomitant]
     Indication: CARDIAC VALVE DISEASE

REACTIONS (4)
  - DRUG PRESCRIBING ERROR [None]
  - NAUSEA [None]
  - THERAPEUTIC RESPONSE DECREASED [None]
  - WEIGHT DECREASED [None]
